FAERS Safety Report 14281404 (Version 1)
Quarter: 2017Q4

REPORT INFORMATION
  Report Type: Spontaneous
  Country: US (occurrence: None)
  Receive Date: 20171213
  Receipt Date: 20171213
  Transmission Date: 20180321
  Serious: Yes (Hospitalization)
  Sender: FDA-Public Use
  Company Number: None

PATIENT
  Age: 57 Year
  Sex: Female

DRUGS (16)
  1. ELIQUIS [Concomitant]
     Active Substance: APIXABAN
  2. ESZOPICLONE. [Concomitant]
     Active Substance: ESZOPICLONE
  3. FUROSEMIDE. [Concomitant]
     Active Substance: FUROSEMIDE
  4. FORTEO [Suspect]
     Active Substance: TERIPARATIDE
     Indication: OSTEOPOROSIS
     Route: 058
     Dates: start: 20170620
  5. BUMEX [Concomitant]
     Active Substance: BUMETANIDE
  6. NITROFURANTOIN. [Concomitant]
     Active Substance: NITROFURANTOIN
  7. TOPIRAMATE. [Concomitant]
     Active Substance: TOPIRAMATE
  8. OXYCODONE [Concomitant]
     Active Substance: OXYCODONE
  9. BACLOFEN. [Concomitant]
     Active Substance: BACLOFEN
  10. KCL [Concomitant]
     Active Substance: POTASSIUM CHLORIDE
  11. GABAPENTIN. [Concomitant]
     Active Substance: GABAPENTIN
  12. TIZANIDINE. [Concomitant]
     Active Substance: TIZANIDINE
  13. ALPRAZOLAM. [Concomitant]
     Active Substance: ALPRAZOLAM
  14. SPIRONOLACTONE. [Concomitant]
     Active Substance: SPIRONOLACTONE
  15. MONTELUKAST [Concomitant]
     Active Substance: MONTELUKAST SODIUM
  16. DESLORATADINE. [Concomitant]
     Active Substance: DESLORATADINE

REACTIONS (2)
  - Fall [None]
  - Back injury [None]

NARRATIVE: CASE EVENT DATE: 201712
